FAERS Safety Report 5195518-0 (Version None)
Quarter: 2007Q1

REPORT INFORMATION
  Report Type: 
  Country: None (occurrence: None)
  Receive Date: 20070102
  Receipt Date: 20061226
  Transmission Date: 20070707
  Serious: Yes (Other)
  Sender: FDA-Public Use
  Company Number: CA-JNJFOC-20061204888

PATIENT
  Sex: Female

DRUGS (3)
  1. DURAGESIC-100 [Suspect]
     Indication: PAIN
     Route: 062
  2. IMOVANE [Concomitant]
     Indication: SLEEP DISORDER
     Route: 065
  3. OXYCONTIN [Concomitant]
     Route: 065

REACTIONS (6)
  - DIARRHOEA [None]
  - INAPPROPRIATE SCHEDULE OF DRUG ADMINISTRATION [None]
  - INITIAL INSOMNIA [None]
  - MALAISE [None]
  - MUSCLE SPASMS [None]
  - PAIN [None]
